FAERS Safety Report 13192553 (Version 4)
Quarter: 2017Q2

REPORT INFORMATION
  Report Type: Spontaneous
  Country: DK (occurrence: DK)
  Receive Date: 20170207
  Receipt Date: 20170629
  Transmission Date: 20170830
  Serious: Yes (Other)
  Sender: FDA-Public Use
  Company Number: DK-PFIZER INC-2017047834

PATIENT
  Age: 40 Year
  Sex: Female

DRUGS (2)
  1. MORPHINE SULFATE. [Suspect]
     Active Substance: MORPHINE SULFATE
     Dosage: UNK
  2. HEROIN [Suspect]
     Active Substance: DIAMORPHINE
     Dosage: UNK

REACTIONS (2)
  - Occupational dermatitis [Recovered/Resolved]
  - Occupational exposure to product [Unknown]

NARRATIVE: CASE EVENT DATE: 20151210
